FAERS Safety Report 9306860 (Version 1)
Quarter: 2013Q2

REPORT INFORMATION
  Report Type: Spontaneous
  Country: US (occurrence: US)
  Receive Date: 20130523
  Receipt Date: 20130523
  Transmission Date: 20140414
  Serious: Yes (Other)
  Sender: FDA-Public Use
  Company Number: CHPA2013US008595

PATIENT
  Age: 76 Year
  Sex: Female

DRUGS (12)
  1. BENEFIBER UNKNOWN [Suspect]
     Indication: NUTRITIONAL SUPPLEMENTATION
     Dosage: UNK, UNK
     Route: 048
     Dates: start: 2003
  2. BENEFIBER UNKNOWN [Suspect]
     Indication: CONSTIPATION
  3. PLAVIX [Suspect]
     Dosage: UNK, QOD
  4. PLAVIX [Suspect]
     Dosage: 75 MG, QD
     Dates: start: 2008
  5. LIPITOR [Suspect]
     Indication: BLOOD CHOLESTEROL INCREASED
     Dosage: UNK, UNK
  6. CRESTOR [Suspect]
     Indication: BLOOD CHOLESTEROL INCREASED
     Dosage: UNK, QOD
  7. CRESTOR [Suspect]
     Dosage: 20 MG, QD
  8. PERDIEM OVERNIGHT RELIEF [Concomitant]
     Indication: CONSTIPATION
     Dosage: 2 DF, UNK
     Route: 048
     Dates: start: 20130520
  9. BISOPROLOL FUMARATE [Concomitant]
     Indication: HYPERTENSION
     Dosage: UNK
  10. LOSARTAN POTASSIUM [Concomitant]
     Indication: HYPERTENSION
  11. L THYROXINE [Concomitant]
     Dosage: UNK
  12. JANUMET [Concomitant]
     Indication: DIABETES MELLITUS

REACTIONS (7)
  - Cataract [Recovering/Resolving]
  - Blood cholesterol increased [Not Recovered/Not Resolved]
  - Ocular hyperaemia [Not Recovered/Not Resolved]
  - Eye pain [Not Recovered/Not Resolved]
  - Headache [Not Recovered/Not Resolved]
  - Constipation [Recovered/Resolved]
  - Off label use [Unknown]
